FAERS Safety Report 24444931 (Version 2)
Quarter: 2024Q4

REPORT INFORMATION
  Report Type: Report from Study
  Country: CA (occurrence: CA)
  Receive Date: 20241016
  Receipt Date: 20241017
  Transmission Date: 20250115
  Serious: No
  Sender: ROCHE
  Company Number: CA-ROCHE-2919946

PATIENT
  Age: 50 Year
  Sex: Male

DRUGS (8)
  1. RITUXAN [Suspect]
     Active Substance: RITUXIMAB
     Indication: Glomerulonephritis membranous
     Route: 042
     Dates: start: 20210922
  2. RITUXAN [Suspect]
     Active Substance: RITUXIMAB
     Route: 042
  3. BENADRYL [Concomitant]
     Active Substance: DIPHENHYDRAMINE HYDROCHLORIDE
     Indication: Premedication
     Dates: start: 20210922
  4. CANDESARTAN [Concomitant]
     Active Substance: CANDESARTAN
  5. ESCITALOPRAM [Concomitant]
     Active Substance: ESCITALOPRAM OXALATE
  6. LEVOTHYROXINE [Concomitant]
     Active Substance: LEVOTHYROXINE
  7. ROSUVASTATIN [Concomitant]
     Active Substance: ROSUVASTATIN
  8. TYLENOL [Concomitant]
     Active Substance: ACETAMINOPHEN
     Indication: Premedication
     Dates: start: 20210922

REACTIONS (10)
  - Heart rate increased [Unknown]
  - Blood pressure increased [Unknown]
  - Blood pressure fluctuation [Unknown]
  - Nausea [Recovering/Resolving]
  - Throat irritation [Recovering/Resolving]
  - Feeling jittery [Unknown]
  - Anxiety [Unknown]
  - Off label use [Unknown]
  - Pruritus [Recovering/Resolving]
  - Blood pressure diastolic abnormal [Unknown]

NARRATIVE: CASE EVENT DATE: 20210922
